FAERS Safety Report 7082495-0 (Version None)
Quarter: 2010Q4

REPORT INFORMATION
  Report Type: 
  Country: None (occurrence: None)
  Receive Date: 20101104
  Receipt Date: 20101022
  Transmission Date: 20110411
  Serious: Yes (Other)
  Sender: FDA-Public Use
  Company Number: FR-RANBAXY-2010RR-36902

PATIENT
  Age: 71 Year
  Sex: Male

DRUGS (2)
  1. PARACETAMOL [Suspect]
     Dosage: 1 G, UNK
     Route: 048
  2. PARACETAMOL [Suspect]
     Indication: PYREXIA
     Route: 042

REACTIONS (1)
  - HYPOTENSION [None]
